FAERS Safety Report 5319217-7 (Version None)
Quarter: 2007Q2

REPORT INFORMATION
  Report Type: 
  Country: None (occurrence: None)
  Receive Date: 20070508
  Receipt Date: 20070411
  Transmission Date: 20071010
  Serious: No
  Sender: FDA-Public Use
  Company Number: US-JNJFOC-20070402873

PATIENT
  Age: 13 Year
  Sex: Male
  Weight: 40.82 kg

DRUGS (5)
  1. INVEGA [Suspect]
     Indication: ATTENTION DEFICIT/HYPERACTIVITY DISORDER
     Route: 048
  2. PROZAC [Concomitant]
     Route: 048
  3. TRAZODONE HCL [Concomitant]
     Route: 048
  4. GUAIFENESIN [Concomitant]
     Route: 048
  5. ADDERALL XL [Concomitant]
     Route: 048

REACTIONS (6)
  - DROOLING [None]
  - DYSKINESIA [None]
  - HEADACHE [None]
  - SPEECH DISORDER [None]
  - TREMOR [None]
  - TRISMUS [None]
